FAERS Safety Report 16726985 (Version 2)
Quarter: 2019Q3

REPORT INFORMATION
  Report Type: Report from Study
  Country: None (occurrence: TW)
  Receive Date: 20190821
  Receipt Date: 20190905
  Transmission Date: 20191005
  Serious: Yes (Hospitalization)
  Sender: FDA-Public Use
  Company Number: TW-ABBVIE-19K-153-2891525-00

PATIENT
  Age: 62 Year
  Sex: Female

DRUGS (1)
  1. HUMIRA [Suspect]
     Active Substance: ADALIMUMAB
     Indication: RHEUMATOID ARTHRITIS
     Route: 058
     Dates: start: 20180111, end: 20190808

REACTIONS (2)
  - Gastric ulcer [Recovering/Resolving]
  - Gastric perforation [Recovering/Resolving]

NARRATIVE: CASE EVENT DATE: 201904
